FAERS Safety Report 24442449 (Version 2)
Quarter: 2024Q4

REPORT INFORMATION
  Report Type: Report from Study
  Country: US (occurrence: US)
  Receive Date: 20241016
  Receipt Date: 20241017
  Transmission Date: 20250115
  Serious: No
  Sender: ROCHE
  Company Number: US-ROCHE-3538261

PATIENT
  Age: 15 Year
  Sex: Male

DRUGS (1)
  1. HEMLIBRA [Suspect]
     Active Substance: EMICIZUMAB-KXWH
     Indication: Factor VIII deficiency
     Dosage: INJECT 4.2ML (630MG TOTAL) SUBCUTANEOUSLY EVERY 28 DAY(S) - SPLIT INJECTIONS OVER 2ML BETWEEN MULTIP
     Route: 058

REACTIONS (1)
  - Pain [Unknown]
